FAERS Safety Report 10542924 (Version 1)
Quarter: 2014Q4

REPORT INFORMATION
  Report Type: Spontaneous
  Country: US (occurrence: None)
  Receive Date: 20141024
  Receipt Date: 20141024
  Transmission Date: 20150529
  Serious: Yes (Death)
  Sender: FDA-Public Use
  Company Number: None

PATIENT
  Age: 75 Year
  Sex: Male
  Weight: 131.09 kg

DRUGS (21)
  1. ASPIRIN. [Concomitant]
     Active Substance: ASPIRIN
  2. GEM [Concomitant]
  3. LIPITOR [Concomitant]
     Active Substance: ATORVASTATIN CALCIUM
  4. BLOOD GLUCOSE MONITOR WITH STRIPS [Concomitant]
  5. LOMOTIL [Concomitant]
     Active Substance: ATROPINE SULFATE\DIPHENOXYLATE HYDROCHLORIDE
  6. METROCREAM CREAM [Concomitant]
  7. VITAMIN B12 [Concomitant]
     Active Substance: CYANOCOBALAMIN
  8. ASCENSIA [Concomitant]
  9. LEVEMIR [Concomitant]
     Active Substance: INSULIN DETEMIR
  10. METOPROLOL TARTRATE. [Concomitant]
     Active Substance: METOPROLOL TARTRATE
  11. MOBIC [Concomitant]
     Active Substance: MELOXICAM
  12. NEURONTIN [Concomitant]
     Active Substance: GABAPENTIN
  13. ATACAND [Concomitant]
     Active Substance: CANDESARTAN CILEXETIL
  14. RIVAROXABAN [Concomitant]
     Active Substance: RIVAROXABAN
  15. MULT VIT [Concomitant]
  16. QUALAQUIN [Concomitant]
     Active Substance: QUININE SULFATE
  17. XARELTO [Suspect]
     Active Substance: RIVAROXABAN
     Dosage: 1 PILL, QD, ORAL
     Route: 048
     Dates: start: 20140102, end: 20140128
  18. GLIPIZIDE. [Concomitant]
     Active Substance: GLIPIZIDE
  19. FOLIC ACID. [Concomitant]
     Active Substance: FOLIC ACID
  20. METFORMIN [Concomitant]
     Active Substance: METFORMIN HYDROCHLORIDE
  21. ONGLYZ [Concomitant]

REACTIONS (3)
  - Haemorrhage [None]
  - Bone contusion [None]
  - Skeletal injury [None]

NARRATIVE: CASE EVENT DATE: 20140128
